FAERS Safety Report 14885541 (Version 2)
Quarter: 2018Q3

REPORT INFORMATION
  Report Type: Spontaneous
  Country: US (occurrence: US)
  Receive Date: 20180511
  Receipt Date: 20180816
  Transmission Date: 20181010
  Serious: No
  Sender: FDA-Public Use
  Company Number: US-AMGEN-USASP2018051942

PATIENT
  Age: 45 Year
  Sex: Male
  Weight: 108.4 kg

DRUGS (3)
  1. PARICALCITOL. [Concomitant]
     Active Substance: PARICALCITOL
     Dosage: 2.0 MUG, UNK
     Route: 042
  2. PARSABIV [Suspect]
     Active Substance: ETELCALCETIDE HYDROCHLORIDE
     Indication: HYPERPARATHYROIDISM SECONDARY
     Dosage: 2.5 MG, UNK
     Route: 042
     Dates: start: 20180131, end: 20180301
  3. PARSABIV [Suspect]
     Active Substance: ETELCALCETIDE HYDROCHLORIDE
     Dosage: 2.5 MG, UNK
     Route: 042
     Dates: start: 20180326, end: 20180402

REACTIONS (3)
  - Pruritus [Recovering/Resolving]
  - Rash [Recovering/Resolving]
  - Underdose [Unknown]

NARRATIVE: CASE EVENT DATE: 20180131
